FAERS Safety Report 13071918 (Version 3)
Quarter: 2017Q1

REPORT INFORMATION
  Report Type: Spontaneous
  Country: JP (occurrence: JP)
  Receive Date: 20161229
  Receipt Date: 20170207
  Transmission Date: 20170428
  Serious: Yes (Life-Threatening, Hospitalization)
  Sender: FDA-Public Use
  Company Number: JP-TAKEDA-2016TUS023375

PATIENT
  Age: 8 Decade
  Sex: Female

DRUGS (4)
  1. FEBURIC [Suspect]
     Active Substance: FEBUXOSTAT
     Indication: HYPERURICAEMIA
     Dosage: 10 MG, QD
     Route: 048
     Dates: start: 201505, end: 20151023
  2. ARASENA A [Interacting]
     Active Substance: VIDARABINE
     Indication: HERPES ZOSTER
     Dosage: 200 MG, QD
     Route: 041
     Dates: start: 20151015, end: 20151019
  3. TRAMCET [Concomitant]
     Active Substance: ACETAMINOPHEN\TRAMADOL
     Indication: HERPES ZOSTER
     Dosage: 37.5/325 MG, QID
     Route: 048
     Dates: start: 20151015, end: 20151019
  4. METHYCOBAL [Concomitant]
     Active Substance: METHYLCOBALAMIN
     Indication: HERPES ZOSTER
     Dosage: UNK
     Route: 048
     Dates: start: 20151015, end: 20151019

REACTIONS (2)
  - Drug interaction [Recovered/Resolved]
  - Toxic encephalopathy [Recovered/Resolved]

NARRATIVE: CASE EVENT DATE: 20151021
